FAERS Safety Report 5444437-0 (Version None)
Quarter: 2007Q3

REPORT INFORMATION
  Report Type: 
  Country: None (occurrence: None)
  Receive Date: 20070827
  Receipt Date: 20070821
  Transmission Date: 20080115
  Serious: Yes (Other)
  Sender: FDA-Public Use
  Company Number: WAES 0706USA01896

PATIENT
  Age: 67 Year
  Sex: Male
  Weight: 41.7309 kg

DRUGS (16)
  1. CAP VORINOSTAT 100 MG [Suspect]
     Indication: MULTIPLE MYELOMA
     Dosage: 400 MG/DAILY/PO
     Route: 048
     Dates: start: 20070327
  2. VELCADE [Suspect]
     Indication: MULTIPLE MYELOMA
     Dosage: 0.9 MG/M[2]/DAILY IV; 0.9 MG/M [2] / DAILY/IV
     Route: 042
     Dates: start: 20070327, end: 20070619
  3. VELCADE [Suspect]
     Indication: MULTIPLE MYELOMA
     Dosage: 0.9 MG/M[2]/DAILY IV; 0.9 MG/M [2] / DAILY/IV
     Route: 042
     Dates: start: 20070626
  4. ACCUPRIL [Concomitant]
  5. ADVAIR DISKUS 100/50 [Concomitant]
  6. CARDIZEM [Concomitant]
  7. CENTRUM [Concomitant]
  8. LORTAB [Concomitant]
  9. LOVENOX [Concomitant]
  10. NEURONTIN [Concomitant]
  11. PRILOSEC [Concomitant]
  12. SENOKOT [Concomitant]
  13. SINGULAIR [Concomitant]
  14. ALBUTEROL [Concomitant]
  15. ALLOPURINOL [Concomitant]
  16. METHADON HCL TAB [Concomitant]

REACTIONS (5)
  - ACTIVITIES OF DAILY LIVING IMPAIRED [None]
  - AMNESIA [None]
  - MEMORY IMPAIRMENT [None]
  - SPEECH DISORDER [None]
  - TREMOR [None]
